FAERS Safety Report 11634933 (Version 1)
Quarter: 2015Q4

REPORT INFORMATION
  Report Type: Spontaneous
  Country: NL (occurrence: NL)
  Receive Date: 20151015
  Receipt Date: 20151015
  Transmission Date: 20160304
  Serious: Yes (Death, Other)
  Sender: FDA-Public Use
  Company Number: NL-B.I. PHARMACEUTICALS,INC./RIDGEFIELD-2015-BI-56375NL

PATIENT
  Age: 42 Year
  Sex: Male

DRUGS (1)
  1. GILOTRIF [Suspect]
     Active Substance: AFATINIB
     Indication: ADENOCARCINOMA
     Route: 065
     Dates: end: 20150905

REACTIONS (9)
  - Epilepsy [Unknown]
  - Rash papular [Unknown]
  - Impetigo [Unknown]
  - Dermatitis acneiform [Unknown]
  - Decreased appetite [Unknown]
  - Disease progression [Fatal]
  - Paronychia [Unknown]
  - Metastases to central nervous system [Unknown]
  - Diarrhoea [Unknown]
